FAERS Safety Report 4966553-X (Version None)
Quarter: 2006Q2

REPORT INFORMATION
  Report Type: 
  Country: None (occurrence: None)
  Receive Date: 20060407
  Receipt Date: 20060329
  Transmission Date: 20061013
  Serious: Yes (Other)
  Sender: FDA-Public Use
  Company Number: TW-JNJFOC-20060307594

PATIENT
  Sex: Male
  Weight: 65 kg

DRUGS (13)
  1. RISPERDAL CONSTA [Suspect]
  2. RISPERDAL [Suspect]
     Dosage: 2 MG THREE TIMES DAILY
     Route: 048
  3. RISPERDAL [Suspect]
     Dosage: 2 MG DAILY AND 2 MG AT BEDTIME
     Route: 048
  4. LITHIUM [Concomitant]
     Route: 048
  5. LITHIUM [Concomitant]
     Route: 048
  6. VENLAFAXINE XR [Concomitant]
     Route: 048
  7. ATIVAN [Concomitant]
     Indication: ANXIETY
  8. RIVOTRIL [Concomitant]
     Dosage: AT NIGHT
  9. RIVOTRIL [Concomitant]
  10. RIVOTRIL [Concomitant]
     Indication: SEDATION
     Dosage: AT NIGHT
  11. RIVOTRIL [Concomitant]
     Indication: ANXIETY
  12. ARTANE [Concomitant]
  13. DALMADORM [Concomitant]
     Dosage: AT NIGHT

REACTIONS (2)
  - DEPRESSION [None]
  - STEVENS-JOHNSON SYNDROME [None]
